FAERS Safety Report 20807406 (Version 1)
Quarter: 2022Q2

REPORT INFORMATION
  Report Type: Spontaneous
  Country: US (occurrence: None)
  Receive Date: 20220510
  Receipt Date: 20220510
  Transmission Date: 20220720
  Serious: Yes (Hospitalization)
  Sender: FDA-Public Use
  Company Number: US-Emmaus Medical, Inc.-EMM202205-000078

PATIENT
  Age: 28 Year
  Sex: Female

DRUGS (1)
  1. ENDARI [Suspect]
     Active Substance: GLUTAMINE
     Indication: Sickle cell disease
     Dosage: 5 GM
     Route: 048
     Dates: start: 20210804

REACTIONS (2)
  - Hip surgery [Unknown]
  - Product dose omission issue [Unknown]

NARRATIVE: CASE EVENT DATE: 20220429
